FAERS Safety Report 11638420 (Version 7)
Quarter: 2016Q3

REPORT INFORMATION
  Report Type: Spontaneous
  Country: US (occurrence: US)
  Receive Date: 20151016
  Receipt Date: 20160713
  Transmission Date: 20161109
  Serious: Yes (Hospitalization, Other)
  Sender: FDA-Public Use
  Company Number: US-009507513-1510USA008069

PATIENT
  Sex: Male

DRUGS (13)
  1. ALENDRONATE SODIUM. [Suspect]
     Active Substance: ALENDRONATE SODIUM
     Indication: OSTEOPOROSIS
     Dosage: 70 MG, QW
     Route: 048
     Dates: start: 20080213, end: 200803
  2. SYNTHROID [Concomitant]
     Active Substance: LEVOTHYROXINE SODIUM
     Indication: PRODUCT USED FOR UNKNOWN INDICATION
     Dosage: UNK, UNKNOWN
     Route: 065
     Dates: start: 195407
  3. PLAVIX [Concomitant]
     Active Substance: CLOPIDOGREL BISULFATE
     Indication: CEREBROVASCULAR ACCIDENT PROPHYLAXIS
     Dosage: UNK, UNKNOWN
     Route: 065
     Dates: start: 200006
  4. OXAPROZIN. [Concomitant]
     Active Substance: OXAPROZIN
     Indication: ARTHRITIS
     Dosage: UNK, UNKNOWN
     Route: 065
     Dates: start: 2000
  5. FLOMAX [Concomitant]
     Active Substance: TAMSULOSIN HYDROCHLORIDE
     Indication: PROSTATOMEGALY
     Dosage: UNK, UNKNOWN
     Route: 065
     Dates: start: 2000
  6. ACTONEL [Suspect]
     Active Substance: RISEDRONATE SODIUM
     Indication: OSTEOPOROSIS
     Dosage: UNK, UNKNOWN
     Route: 065
  7. CORTICOSTEROIDS (UNSPECIFIED) [Concomitant]
     Active Substance: UNSPECIFIED INGREDIENT
     Indication: PRODUCT USED FOR UNKNOWN INDICATION
     Dosage: UNK, UNKNOWN
     Route: 065
     Dates: start: 194012, end: 201007
  8. FOSAMAX [Suspect]
     Active Substance: ALENDRONATE SODIUM
     Indication: OSTEOPOROSIS
     Dosage: 70 MG, QW
     Route: 048
     Dates: start: 20060303, end: 200802
  9. FOSAMAX [Suspect]
     Active Substance: ALENDRONATE SODIUM
     Indication: OSTEOPENIA
     Dosage: 70 MG, QW
     Route: 048
     Dates: start: 200803, end: 20121213
  10. FLUTICASONE [Concomitant]
     Active Substance: FLUTICASONE\FLUTICASONE PROPIONATE
     Indication: PRODUCT USED FOR UNKNOWN INDICATION
     Dosage: UNK, UNKNOWN
     Route: 065
     Dates: start: 2000
  11. ALENDRONATE SODIUM. [Suspect]
     Active Substance: ALENDRONATE SODIUM
     Indication: OSTEOPENIA
  12. ALENDRONATE SODIUM. [Suspect]
     Active Substance: ALENDRONATE SODIUM
     Indication: OSTEOPOROSIS
     Dosage: 70 MG, QW
     Route: 048
     Dates: start: 200809, end: 201209
  13. ALENDRONATE SODIUM. [Suspect]
     Active Substance: ALENDRONATE SODIUM
     Indication: OSTEOPENIA

REACTIONS (32)
  - Pneumonia [Unknown]
  - Inguinal hernia repair [Unknown]
  - Myocardial infarction [Unknown]
  - Gastrooesophageal reflux disease [Unknown]
  - Oesophageal disorder [Unknown]
  - Gastrointestinal haemorrhage [Unknown]
  - Anaemia postoperative [Unknown]
  - Joint injury [Unknown]
  - Basal cell carcinoma [Unknown]
  - Haemorrhoid operation [Unknown]
  - Fall [Unknown]
  - Constipation [Not Recovered/Not Resolved]
  - Anxiety [Unknown]
  - Muscular weakness [Unknown]
  - Tremor [Unknown]
  - Hypogonadism [Unknown]
  - Non-Hodgkin^s lymphoma [Unknown]
  - Cataract [Unknown]
  - Coronary ostial stenosis [Unknown]
  - Carpal tunnel syndrome [Unknown]
  - Synovial cyst [Unknown]
  - Nasal congestion [Unknown]
  - Insomnia [Recovered/Resolved]
  - Increased tendency to bruise [Unknown]
  - Hernia repair [Unknown]
  - Musculoskeletal stiffness [Unknown]
  - Coronary arterial stent insertion [Unknown]
  - Limb operation [Unknown]
  - Coronary artery stenosis [Unknown]
  - Femur fracture [Unknown]
  - Stress fracture [Unknown]
  - Pain [Unknown]

NARRATIVE: CASE EVENT DATE: 20070416
